FAERS Safety Report 7903756-6 (Version None)
Quarter: 2011Q4

REPORT INFORMATION
  Report Type: 
  Country: None (occurrence: None)
  Receive Date: 20111109
  Receipt Date: 20111104
  Transmission Date: 20120403
  Serious: Yes (Death, Other)
  Sender: FDA-Public Use
  Company Number: PHHY2011IL098413

PATIENT
  Age: 33 Year
  Sex: Female

DRUGS (9)
  1. DOXORUBICIN HCL [Suspect]
     Indication: METASTASES TO LIVER
  2. CYCLOPHOSPHAMIDE [Suspect]
     Indication: METASTASES TO LIVER
  3. CARBOPLATIN [Suspect]
     Indication: METASTASES TO LIVER
  4. TRASTUZUMAB [Suspect]
     Indication: METASTASES TO LIVER
  5. ALDACTONE [Concomitant]
  6. PACLITAXEL [Suspect]
     Indication: METASTASES TO LIVER
  7. GEMCITABINE [Suspect]
     Indication: METASTASES TO LIVER
  8. FENTANYL-100 [Concomitant]
  9. FUROSEMIDE [Concomitant]

REACTIONS (4)
  - METASTASES TO LUNG [None]
  - CARDIAC CIRRHOSIS [None]
  - HEPATIC FAILURE [None]
  - METASTASES TO BONE [None]
